FAERS Safety Report 13586598 (Version 3)
Quarter: 2017Q3

REPORT INFORMATION
  Report Type: Spontaneous
  Country: US (occurrence: US)
  Receive Date: 20170526
  Receipt Date: 20170908
  Transmission Date: 20171127
  Serious: Yes (Hospitalization, Other)
  Sender: FDA-Public Use
  Company Number: US-PURDUE-USA-2017-0139073

PATIENT
  Sex: Female
  Weight: 77.98 kg

DRUGS (13)
  1. VITAMIN E                          /00110501/ [Concomitant]
     Active Substance: TOCOPHEROL
     Indication: PRODUCT USED FOR UNKNOWN INDICATION
     Dosage: UNK
     Route: 065
  2. ALDACTONE [Concomitant]
     Active Substance: SPIRONOLACTONE
     Indication: PRODUCT USED FOR UNKNOWN INDICATION
     Dosage: 50 MG, DAILY
     Route: 048
  3. VOLTAREN [Concomitant]
     Active Substance: DICLOFENAC SODIUM
     Indication: PRODUCT USED FOR UNKNOWN INDICATION
     Dosage: UNK, BID
     Route: 065
  4. CALCIUM [Concomitant]
     Active Substance: CALCIUM
     Indication: PRODUCT USED FOR UNKNOWN INDICATION
     Dosage: UNK
     Route: 065
  5. HYDROCODONE BITARTRATE AND ACETAMINOPHEN [Suspect]
     Active Substance: ACETAMINOPHEN\HYDROCODONE BITARTRATE
     Indication: PRODUCT USED FOR UNKNOWN INDICATION
     Dosage: UNK (7.5 MG)
     Route: 048
  6. DOCUSATE SODIUM. [Concomitant]
     Active Substance: DOCUSATE SODIUM
     Indication: PRODUCT USED FOR UNKNOWN INDICATION
     Dosage: UNK
     Route: 065
  7. MORPHINE SULFATE (SIMILAR TO NDA 19-516) [Suspect]
     Active Substance: MORPHINE SULFATE
     Indication: PRODUCT USED FOR UNKNOWN INDICATION
     Dosage: UNK
     Route: 048
  8. HYZAAR [Concomitant]
     Active Substance: HYDROCHLOROTHIAZIDE\LOSARTAN POTASSIUM
     Indication: PRODUCT USED FOR UNKNOWN INDICATION
     Dosage: UNK (100-25MG)
     Route: 065
  9. VITAMIN D                          /00107901/ [Concomitant]
     Active Substance: ERGOCALCIFEROL
     Indication: PRODUCT USED FOR UNKNOWN INDICATION
     Dosage: UNK
     Route: 065
  10. OYSTER SHELL CALCIUM WITH VITAMIN D/01204201/ [Concomitant]
     Indication: PRODUCT USED FOR UNKNOWN INDICATION
     Dosage: 2 TABLET, DAILY (1250 MG /500 MG)
     Route: 048
  11. NORCO [Suspect]
     Active Substance: ACETAMINOPHEN\HYDROCODONE BITARTRATE
     Indication: PAIN
     Dosage: UNK (7.5-325 MG)
     Route: 065
  12. ALEVE [Concomitant]
     Active Substance: NAPROXEN SODIUM
     Indication: PRODUCT USED FOR UNKNOWN INDICATION
     Dosage: UNK
     Route: 065
  13. EFFEXOR XR [Concomitant]
     Active Substance: VENLAFAXINE HYDROCHLORIDE
     Indication: PRODUCT USED FOR UNKNOWN INDICATION
     Dosage: 75 MG, DAILY
     Route: 048

REACTIONS (34)
  - Weight decreased [Recovered/Resolved]
  - Eructation [Not Recovered/Not Resolved]
  - Femur fracture [Not Recovered/Not Resolved]
  - Feeling hot [Not Recovered/Not Resolved]
  - Aphthous ulcer [Not Recovered/Not Resolved]
  - Anxiety [Not Recovered/Not Resolved]
  - Constipation [Recovered/Resolved]
  - Noninfective gingivitis [Not Recovered/Not Resolved]
  - Stress [Not Recovered/Not Resolved]
  - Hot flush [Unknown]
  - Palpitations [Unknown]
  - Dysgeusia [Not Recovered/Not Resolved]
  - Disease progression [Not Recovered/Not Resolved]
  - Somnolence [Not Recovered/Not Resolved]
  - Metastatic renal cell carcinoma [Not Recovered/Not Resolved]
  - Glossodynia [Not Recovered/Not Resolved]
  - Blood pressure fluctuation [Recovered/Resolved]
  - Restlessness [Not Recovered/Not Resolved]
  - Ageusia [Not Recovered/Not Resolved]
  - Tongue discomfort [Not Recovered/Not Resolved]
  - Nausea [Not Recovered/Not Resolved]
  - Oral pain [Not Recovered/Not Resolved]
  - Insomnia [Not Recovered/Not Resolved]
  - Gastrooesophageal reflux disease [Not Recovered/Not Resolved]
  - Drug withdrawal syndrome [Not Recovered/Not Resolved]
  - Stomatitis [Unknown]
  - Pain in extremity [Not Recovered/Not Resolved]
  - Vomiting [Not Recovered/Not Resolved]
  - Malaise [Recovered/Resolved]
  - Dyspepsia [Not Recovered/Not Resolved]
  - Headache [Recovered/Resolved]
  - Yellow skin [Not Recovered/Not Resolved]
  - Chills [Not Recovered/Not Resolved]
  - Hypophagia [Recovered/Resolved]
